FAERS Safety Report 17778364 (Version 2)
Quarter: 2020Q4

REPORT INFORMATION
  Report Type: Spontaneous
  Country: US (occurrence: US)
  Receive Date: 20200513
  Receipt Date: 20201120
  Transmission Date: 20210113
  Serious: Yes (Death, Other)
  Sender: FDA-Public Use
  Company Number: US-GILEAD-2020-0466795

PATIENT
  Age: 73 Year
  Sex: Male

DRUGS (2)
  1. VIREAD [Suspect]
     Active Substance: TENOFOVIR DISOPROXIL FUMARATE
     Indication: HIV INFECTION
     Dosage: UNK
     Route: 048
     Dates: start: 2002, end: 2005
  2. TRUVADA [Suspect]
     Active Substance: EMTRICITABINE\TENOFOVIR DISOPROXIL FUMARATE
     Indication: HIV INFECTION
     Dosage: UNK
     Route: 065
     Dates: start: 2004, end: 2005

REACTIONS (7)
  - Renal failure [Not Recovered/Not Resolved]
  - Skeletal injury [Fatal]
  - Osteoporosis [Not Recovered/Not Resolved]
  - Nephropathy [Not Recovered/Not Resolved]
  - Tooth loss [Not Recovered/Not Resolved]
  - Death [Fatal]
  - Renal injury [Fatal]

NARRATIVE: CASE EVENT DATE: 20050731
